FAERS Safety Report 8214262-6 (Version None)
Quarter: 2012Q1

REPORT INFORMATION
  Report Type: 
  Country: None (occurrence: None)
  Receive Date: 20120316
  Receipt Date: 20120308
  Transmission Date: 20120608
  Serious: Yes (Life-Threatening, Hospitalization, Other)
  Sender: FDA-Public Use
  Company Number: DE-JNJFOC-20120203140

PATIENT
  Sex: Male

DRUGS (10)
  1. SEROQUEL [Concomitant]
     Indication: DEPRESSION
     Route: 048
     Dates: start: 20110823, end: 20120126
  2. RISPERDAL [Suspect]
     Indication: DELUSION
     Route: 048
     Dates: start: 20120126, end: 20120126
  3. SEROQUEL [Concomitant]
     Indication: TENSION
     Route: 048
     Dates: start: 20110823, end: 20120126
  4. ANAFRANIL [Suspect]
     Indication: DEPRESSION
     Route: 048
     Dates: start: 20111115, end: 20120126
  5. SEROQUEL [Concomitant]
     Indication: RESTLESSNESS
     Route: 048
     Dates: start: 20110823, end: 20120126
  6. RISPERDAL [Suspect]
     Route: 048
     Dates: start: 20120119
  7. RISPERDAL [Suspect]
     Indication: DEPRESSIVE DELUSION
     Route: 048
     Dates: start: 20120126, end: 20120126
  8. RISPERDAL [Suspect]
     Route: 048
     Dates: start: 20120119
  9. LUDIOMIL [Suspect]
     Indication: DEPRESSION
     Route: 048
     Dates: start: 20111115, end: 20120126
  10. LORAZEPAM [Concomitant]
     Route: 048

REACTIONS (13)
  - INTENTIONAL SELF-INJURY [None]
  - SUICIDE ATTEMPT [None]
  - CONFUSIONAL STATE [None]
  - PALLOR [None]
  - DEPRESSED MOOD [None]
  - HYPONATRAEMIA [None]
  - THIRST [None]
  - RESTLESSNESS [None]
  - DELIRIUM [None]
  - COLD SWEAT [None]
  - TENSION [None]
  - INAPPROPRIATE ANTIDIURETIC HORMONE SECRETION [None]
  - SOMNOLENCE [None]
